FAERS Safety Report 10208161 (Version 1)
Quarter: 2014Q2

REPORT INFORMATION
  Report Type: Spontaneous
  Country: ES (occurrence: ES)
  Receive Date: 20140530
  Receipt Date: 20140530
  Transmission Date: 20141212
  Serious: Yes (Life-Threatening, Hospitalization)
  Sender: FDA-Public Use
  Company Number: ES-WATSON-2014-10854

PATIENT
  Age: 18 Year
  Sex: Female

DRUGS (2)
  1. LEVOFLOXACIN (UNKNOWN) [Suspect]
     Indication: URINARY TRACT INFECTION
     Dosage: 500 MG, SINGLE
     Route: 065
  2. LEVOFLOXACIN (UNKNOWN) [Suspect]
     Indication: WRONG DRUG ADMINISTERED

REACTIONS (2)
  - Myasthenia gravis crisis [Recovered/Resolved]
  - Wrong drug administered [Recovered/Resolved]
